FAERS Safety Report 8119968-5 (Version None)
Quarter: 2012Q1

REPORT INFORMATION
  Report Type: 
  Country: None (occurrence: None)
  Receive Date: 20120207
  Receipt Date: 20120127
  Transmission Date: 20120608
  Serious: Yes (Hospitalization)
  Sender: FDA-Public Use
  Company Number: BR-MEDIMMUNE-MEDI-0013157

PATIENT
  Sex: Male
  Weight: 2.6 kg

DRUGS (4)
  1. RANITIDINE HCL [Concomitant]
  2. SYNAGIS [Suspect]
     Route: 030
     Dates: start: 20110404, end: 20110404
  3. SYNAGIS [Suspect]
     Route: 030
     Dates: start: 20110602, end: 20110802
  4. DOMPERIDONE [Concomitant]

REACTIONS (7)
  - SWELLING [None]
  - PNEUMONIA [None]
  - OXYGEN SATURATION DECREASED [None]
  - RESPIRATORY RATE INCREASED [None]
  - DISCOMFORT [None]
  - BRONCHIOLITIS [None]
  - COUGH [None]
